FAERS Safety Report 4428974-3 (Version None)
Quarter: 2004Q3

REPORT INFORMATION
  Report Type: 
  Country: None (occurrence: None)
  Receive Date: 20040818
  Receipt Date: 20040730
  Transmission Date: 20050211
  Serious: No
  Sender: FDA-Public Use
  Company Number: US-GLAXOSMITHKLINE-A0520374A

PATIENT

DRUGS (2)
  1. LOTRONEX [Suspect]
     Indication: IRRITABLE BOWEL SYNDROME
     Dosage: 1MG PER DAY
     Route: 048
     Dates: start: 20040501
  2. NO CONCURRENT MEDICATION [Concomitant]

REACTIONS (2)
  - ABDOMINAL PAIN [None]
  - GASTROINTESTINAL PAIN [None]
